FAERS Safety Report 9373401 (Version 1)
Quarter: 2013Q2

REPORT INFORMATION
  Report Type: Report from Study
  Country: VE (occurrence: VE)
  Receive Date: 20130627
  Receipt Date: 20130627
  Transmission Date: 20140414
  Serious: Yes (Hospitalization)
  Sender: FDA-Public Use
  Company Number: VE-ABBOTT-13P-178-1108522-00

PATIENT
  Age: 17 Year
  Sex: Female

DRUGS (1)
  1. ZEMPLAR [Suspect]
     Indication: RENAL FAILURE
     Route: 042
     Dates: start: 2012, end: 201306

REACTIONS (2)
  - Abscess [Not Recovered/Not Resolved]
  - Infection [Not Recovered/Not Resolved]
